FAERS Safety Report 9290952 (Version 1)
Quarter: 2013Q2

REPORT INFORMATION
  Report Type: Spontaneous
  Country: BR (occurrence: BR)
  Receive Date: 20130515
  Receipt Date: 20130515
  Transmission Date: 20140414
  Serious: Yes (Hospitalization)
  Sender: FDA-Public Use
  Company Number: BR-ASTRAZENECA-2013SE31839

PATIENT
  Age: 775 Month
  Sex: Male
  Weight: 74 kg

DRUGS (8)
  1. VANNAIR [Suspect]
     Indication: ASTHMA
     Dosage: 160/4.5 MCG BID
     Route: 055
     Dates: start: 2009
  2. BRILINTA [Suspect]
     Indication: MYOCARDIAL INFARCTION
     Route: 048
     Dates: start: 20130505
  3. ASA [Suspect]
     Indication: MYOCARDIAL INFARCTION
     Route: 065
     Dates: start: 201303, end: 20130504
  4. CLOPIDOGREL BISULFATE [Suspect]
     Indication: MYOCARDIAL INFARCTION
     Route: 065
     Dates: start: 201303, end: 20130504
  5. ATROVENT [Concomitant]
     Indication: ASTHMA
     Dates: start: 2009
  6. BEROTEC [Concomitant]
     Indication: ASTHMA
     Dates: start: 2009
  7. SIMVASTATIN [Concomitant]
     Indication: HYPERCHOLESTEROLAEMIA
     Dosage: EVERY OTHER DAY
     Dates: start: 1999, end: 201303
  8. ZETIA [Concomitant]
     Indication: HYPERCHOLESTEROLAEMIA
     Dates: start: 201303

REACTIONS (4)
  - Myocardial infarction [Recovered/Resolved]
  - Asthma [Recovering/Resolving]
  - Dyspnoea [Not Recovered/Not Resolved]
  - Angina pectoris [Recovered/Resolved]
